FAERS Safety Report 24728349 (Version 1)
Quarter: 2024Q4

REPORT INFORMATION
  Report Type: Spontaneous
  Country: US (occurrence: US)
  Receive Date: 20241212
  Receipt Date: 20241212
  Transmission Date: 20250115
  Serious: Yes (Death, Other)
  Sender: JOHNSON AND JOHNSON
  Company Number: US-VIIV HEALTHCARE-US2024AMR154123

PATIENT
  Age: 55 Year
  Sex: Female
  Weight: 86.6 kg

DRUGS (2)
  1. CABENUVA [Suspect]
     Active Substance: CABOTEGRAVIR\RILPIVIRINE
     Indication: HIV infection
     Dosage: UNK, 600/900 MG, MONTH AFTER INITIAL DOSE, THEN GIVE SAME DOSE EVERY TWO (2) MONTHS THEREAFTER
     Route: 030
  2. CABENUVA [Suspect]
     Active Substance: CABOTEGRAVIR\RILPIVIRINE
     Indication: HIV infection
     Dosage: UNK, 600/900 MG, MONTH AFTER INITIAL DOSE, THEN GIVE SAME DOSE EVERY TWO (2) MONTHS THEREAFTER
     Route: 030

REACTIONS (1)
  - Death [Fatal]
